FAERS Safety Report 9967471 (Version 2)
Quarter: 2014Q1

REPORT INFORMATION
  Report Type: Report from Study
  Country: US (occurrence: US)
  Receive Date: 20140305
  Receipt Date: 20140305
  Transmission Date: 20141002
  Serious: No
  Sender: FDA-Public Use
  Company Number: US-ABBVIE-13P-163-1133579-00

PATIENT
  Age: 52 Year
  Sex: Male

DRUGS (10)
  1. HUMIRA [Suspect]
     Indication: COLITIS ULCERATIVE
     Dosage: DAY 1
     Dates: start: 20130626
  2. HUMIRA [Suspect]
     Dosage: DAY 15
  3. HUMIRA [Suspect]
  4. BUDESONIDE [Concomitant]
     Indication: INFLAMMATION
  5. FIBERCON [Concomitant]
     Indication: COLITIS ULCERATIVE
     Dosage: WITH MEALS
  6. CHOLESTIPOL [Concomitant]
     Indication: DIARRHOEA
     Dosage: WITH MEALS
  7. CHOLESTIPOL [Concomitant]
     Indication: COLITIS ULCERATIVE
  8. SINGULAIR [Concomitant]
     Indication: SEASONAL ALLERGY
  9. SIMETHICONE [Concomitant]
     Indication: PRODUCT USED FOR UNKNOWN INDICATION
  10. ZOLOFT [Concomitant]
     Indication: ANXIETY DISORDER

REACTIONS (7)
  - Fatigue [Not Recovered/Not Resolved]
  - Fatigue [Not Recovered/Not Resolved]
  - Psychomotor hyperactivity [Not Recovered/Not Resolved]
  - Abdominal pain upper [Not Recovered/Not Resolved]
  - Flatulence [Not Recovered/Not Resolved]
  - Diet refusal [Not Recovered/Not Resolved]
  - Fatigue [Not Recovered/Not Resolved]
